FAERS Safety Report 4704303-2 (Version None)
Quarter: 2005Q2

REPORT INFORMATION
  Report Type: 
  Country: None (occurrence: None)
  Receive Date: 20050630
  Receipt Date: 20050622
  Transmission Date: 20051028
  Serious: Yes (Other)
  Sender: FDA-Public Use
  Company Number: 200515827GDDC

PATIENT
  Age: 37 Year
  Sex: Female
  Weight: 66 kg

DRUGS (3)
  1. METRONIDAZOLE [Suspect]
     Indication: VAGINAL DISORDER
     Route: 048
     Dates: start: 20050519, end: 20050526
  2. ACETAMINOPHEN W/ CODEINE [Concomitant]
     Dosage: DOSE: 30/500 REGULAR USE
     Route: 048
  3. ARTHROTEC [Concomitant]
     Dates: start: 20050201

REACTIONS (3)
  - ARTHRALGIA [None]
  - ERYTHEMA MULTIFORME [None]
  - RASH GENERALISED [None]
